FAERS Safety Report 9061664 (Version 2)
Quarter: 2012Q4

REPORT INFORMATION
  Report Type: Spontaneous
  Country: US (occurrence: None)
  Receive Date: 20120907
  Receipt Date: 20121114
  Transmission Date: 20130627
  Serious: Yes (Hospitalization, Other)
  Sender: FDA-Public Use
  Company Number: US-CLINIGEN HEALTHCARE LIMITED-002993

PATIENT
  Age: 66 Year
  Sex: Male

DRUGS (5)
  1. FOSCAVIR [Suspect]
     Indication: RETINAL NECROSIS
     Route: 013
     Dates: start: 20070801, end: 20070810
  2. FOSCAVIR [Suspect]
     Indication: RETINAL NECROSIS
     Dosage: 1.00-G-2.00 times per 1.0 days
  3. VALACICLOVIR HYDROCHLORIDE [Suspect]
     Indication: RETINAL NECROSIS
  4. ACYCLOVIR SODIUM [Suspect]
     Indication: RETINAL NECROSIS
     Route: 042
  5. SOLUMEDROL(METHYLPREDNISOLONE SODIUM SUCCINATE) INFUSION [Concomitant]

REACTIONS (5)
  - Retinal detachment [None]
  - Off label use [None]
  - Coronary artery occlusion [None]
  - Hypertension [None]
  - Hyperlipidaemia [None]
